FAERS Safety Report 9648142 (Version 2)
Quarter: 2013Q4

REPORT INFORMATION
  Report Type: Report from Study
  Country: NZ (occurrence: NZ)
  Receive Date: 20131028
  Receipt Date: 20131119
  Transmission Date: 20140711
  Serious: Yes (Other)
  Sender: FDA-Public Use
  Company Number: PHHY2013NZ120452

PATIENT
  Sex: Male

DRUGS (4)
  1. CLOZARIL [Suspect]
     Indication: PSYCHOTIC DISORDER
     Dosage: 300 MG
     Dates: start: 20011221, end: 20130916
  2. CLOZARIL [Suspect]
     Dosage: DOSE DECREASED
  3. AMISULPRIDE [Concomitant]
     Indication: PSYCHOTIC DISORDER
     Dosage: 300 MG, NOCTE
  4. MODECATE [Concomitant]
     Indication: PSYCHOTIC DISORDER
     Dosage: 37.5 MG, UNK

REACTIONS (5)
  - Uveitis [Unknown]
  - Ocular hyperaemia [Unknown]
  - Conjunctivitis [Unknown]
  - Corneal deposits [Unknown]
  - Visual acuity reduced [Unknown]
